FAERS Safety Report 10234339 (Version 1)
Quarter: 2014Q2

REPORT INFORMATION
  Report Type: Spontaneous
  Country: US (occurrence: US)
  Receive Date: 20140612
  Receipt Date: 20140612
  Transmission Date: 20141212
  Serious: No
  Sender: FDA-Public Use
  Company Number: US-009507513-1406USA006364

PATIENT
  Age: 20 Year
  Sex: Female
  Weight: 61.23 kg

DRUGS (1)
  1. NEXPLANON [Suspect]
     Indication: CONTRACEPTION
     Dosage: UNK
     Route: 059
     Dates: start: 20140108

REACTIONS (2)
  - Amenorrhoea [Unknown]
  - Metrorrhagia [Unknown]
